FAERS Safety Report 22390796 (Version 3)
Quarter: 2023Q4

REPORT INFORMATION
  Report Type: Report from Study
  Country: DE (occurrence: DE)
  Receive Date: 20230531
  Receipt Date: 20231018
  Transmission Date: 20240109
  Serious: Yes (Hospitalization, Other)
  Sender: FDA-Public Use
  Company Number: DE-CELLTRION INC.-2023DE011096

PATIENT

DRUGS (13)
  1. INFLIXIMAB [Suspect]
     Active Substance: INFLIXIMAB
     Indication: Product used for unknown indication
     Dosage: 400MG EVERY 8 WEEKS (T13: 08.03.2023)
     Route: 042
     Dates: start: 20230308
  2. INFLIXIMAB [Suspect]
     Active Substance: INFLIXIMAB
     Dosage: 240 MG (T12: 17.11.2022)
     Route: 042
     Dates: start: 202206, end: 20221117
  3. ORENCIA [Concomitant]
     Active Substance: ABATACEPT
     Dosage: 125 MG
     Dates: start: 201704, end: 201709
  4. TOCILIZUMAB [Concomitant]
     Active Substance: TOCILIZUMAB
     Dosage: 162 MG
     Dates: start: 201709, end: 201801
  5. CIMZIA [Concomitant]
     Active Substance: CERTOLIZUMAB PEGOL
     Dosage: 400 MG
     Dates: start: 201805, end: 201810
  6. KEVZARA [Concomitant]
     Active Substance: SARILUMAB
     Dosage: 200 MG
     Dates: start: 201905, end: 202101
  7. ADALIMUMAB [Concomitant]
     Active Substance: ADALIMUMAB\ISOPROPYL ALCOHOL
     Dosage: 40 MG
     Dates: start: 202105, end: 202110
  8. MABTHERA [Concomitant]
     Active Substance: RITUXIMAB
     Dosage: 1000
     Dates: start: 201811
  9. METHOTREXATE SODIUM [Concomitant]
     Active Substance: METHOTREXATE SODIUM
     Dosage: MTX 5 T4
     Dates: start: 20181128
  10. XELJANZ [Concomitant]
     Active Substance: TOFACITINIB CITRATE
     Dosage: 5 MG
     Dates: start: 201801, end: 201805
  11. OLUMIANT [Concomitant]
     Active Substance: BARICITINIB
     Dosage: 4 MG
     Dates: start: 202111, end: 202201
  12. RINVOQ [Concomitant]
     Active Substance: UPADACITINIB
     Dosage: 15 MG
     Dates: start: 202101, end: 202105
  13. FILGOTINIB [Concomitant]
     Active Substance: FILGOTINIB
     Dosage: 200 MG
     Dates: start: 202202, end: 202204

REACTIONS (1)
  - Depression [Recovered/Resolved]

NARRATIVE: CASE EVENT DATE: 20230216
